FAERS Safety Report 25977052 (Version 2)
Quarter: 2025Q4

REPORT INFORMATION
  Report Type: Spontaneous
  Country: US (occurrence: US)
  Receive Date: 20251030
  Receipt Date: 20251117
  Transmission Date: 20260118
  Serious: Yes (Hospitalization)
  Sender: TEVA
  Company Number: US-TEVA-VS-3386274

PATIENT
  Age: 57 Year
  Sex: Female

DRUGS (1)
  1. NITROGLYCERIN [Suspect]
     Active Substance: NITROGLYCERIN
     Indication: Analgesic therapy
     Dosage: NITROGLYCERIN
     Route: 065

REACTIONS (6)
  - Chest pain [Recovered/Resolved]
  - Intentional product misuse [Unknown]
  - Hypertension [Recovered/Resolved]
  - Hyperventilation [Recovered/Resolved]
  - Headache [Recovered/Resolved]
  - Chest discomfort [Recovered/Resolved]
